FAERS Safety Report 10744095 (Version 1)
Quarter: 2015Q1

REPORT INFORMATION
  Report Type: Spontaneous
  Country: US (occurrence: None)
  Receive Date: 20150126
  Receipt Date: 20150126
  Transmission Date: 20150721
  Serious: Yes (Death, Hospitalization)
  Sender: FDA-Public Use
  Company Number: None

PATIENT
  Age: 64 Year
  Sex: Female
  Weight: 104 kg

DRUGS (1)
  1. BEVAZCIZUMAB (RHUMAB VEGF) [Suspect]
     Active Substance: BEVACIZUMAB
     Dates: end: 20141209

REACTIONS (5)
  - Fall [None]
  - Muscular weakness [None]
  - Cerebral haemorrhage [None]
  - Head injury [None]
  - Mobility decreased [None]

NARRATIVE: CASE EVENT DATE: 20141222
